FAERS Safety Report 8256540-0 (Version None)
Quarter: 2012Q1

REPORT INFORMATION
  Report Type: 
  Country: None (occurrence: None)
  Receive Date: 20120330
  Receipt Date: 20120322
  Transmission Date: 20120608
  Serious: Yes (Hospitalization)
  Sender: FDA-Public Use
  Company Number: 2012SP009662

PATIENT
  Age: 51 Year
  Sex: Male

DRUGS (8)
  1. ACT HIB (HAEMOPHILUS B CONJUGATE VACCINE) [Suspect]
     Indication: IMMUNISATION
     Dates: start: 20110926, end: 20110926
  2. ACT HIB (HAEMOPHILUS B CONJUGATE VACCINE) [Suspect]
     Indication: IMMUNISATION
     Dates: start: 20111108, end: 20111108
  3. FOSCAVIR [Concomitant]
  4. NOXAFIL [Suspect]
     Indication: ORAL LICHEN PLANUS
     Dosage: 200 MG;TID
     Dates: start: 20110715, end: 20110926
  5. VIVAGLOBIN [Suspect]
     Indication: CHRONIC LYMPHOCYTIC LEUKAEMIA
     Dosage: 1 DF;QW;IV
     Route: 042
     Dates: start: 20111025
  6. GANCICLOVIR [Suspect]
     Indication: CYTOMEGALOVIRUS VIRAEMIA
     Dosage: 250 MG;QD;PO
     Route: 048
     Dates: start: 20110812, end: 20110826
  7. GANCICLOVIR [Suspect]
     Indication: CYTOMEGALOVIRUS VIRAEMIA
     Dosage: 250 MG;QD;PO
     Route: 048
     Dates: start: 20110715, end: 20110720
  8. PREDNISONE [Suspect]
     Indication: ACUTE GRAFT VERSUS HOST DISEASE
     Dosage: 30 MG;BID
     Dates: start: 20110715, end: 20110926

REACTIONS (6)
  - ANAEMIA [None]
  - THROMBOCYTOPENIA [None]
  - TOXICITY TO VARIOUS AGENTS [None]
  - DIABETES MELLITUS [None]
  - LEUKOPENIA [None]
  - CYTOMEGALOVIRUS INFECTION [None]
